FAERS Safety Report 9483921 (Version 1)
Quarter: 2013Q3

REPORT INFORMATION
  Report Type: Spontaneous
  Country: FR (occurrence: FR)
  Receive Date: 20130828
  Receipt Date: 20130828
  Transmission Date: 20140515
  Serious: Yes (Hospitalization)
  Sender: FDA-Public Use
  Company Number: FR-ELI_LILLY_AND_COMPANY-FR201308005965

PATIENT
  Age: 38 Year
  Sex: Female

DRUGS (3)
  1. CYMBALTA [Suspect]
     Dosage: 60 MG, QD
     Route: 048
     Dates: start: 201301
  2. GILENYA [Suspect]
     Indication: RELAPSING-REMITTING MULTIPLE SCLEROSIS
     Dosage: 0.5 MG, QD
     Route: 048
     Dates: start: 20121204
  3. SOLUMEDROL [Concomitant]
     Indication: RELAPSING-REMITTING MULTIPLE SCLEROSIS
     Dosage: 1 G, QD
     Route: 065

REACTIONS (1)
  - Hypertriglyceridaemia [Recovering/Resolving]
